FAERS Safety Report 21473706 (Version 1)
Quarter: 2022Q4

REPORT INFORMATION
  Report Type: Spontaneous
  Country: US (occurrence: US)
  Receive Date: 20221018
  Receipt Date: 20221018
  Transmission Date: 20230113
  Serious: Yes (Hospitalization, Other)
  Sender: FDA-Public Use
  Company Number: US-JUBILANT CADISTA PHARMACEUTICALS-2022JUB00354

PATIENT
  Age: 72 Year
  Sex: Male

DRUGS (2)
  1. VALACYCLOVIR HYDROCHLORIDE [Suspect]
     Active Substance: VALACYCLOVIR HYDROCHLORIDE
     Indication: Herpes zoster
     Dosage: 1 G, 3X/DAY (EVERY 8 HOUR, PRESCRIBED VALACYCLOVIR AT SIX-TIMES THE RECOMMENDED DOSE)
  2. TRAMADOL [Concomitant]
     Active Substance: TRAMADOL
     Indication: Pain
     Dosage: 50 MG, 3X/DAY (EVERY 8 HOUR, AS NEEDED)

REACTIONS (2)
  - Neurotoxicity [Recovering/Resolving]
  - Incorrect dose administered [Recovered/Resolved]
